FAERS Safety Report 11303125 (Version 1)
Quarter: 2015Q3

REPORT INFORMATION
  Report Type: Spontaneous
  Country: US (occurrence: US)
  Receive Date: 20150723
  Receipt Date: 20150723
  Transmission Date: 20151125
  Serious: No
  Sender: FDA-Public Use
  Company Number: US-ENDO PHARMACEUTICALS INC.-2015-001640

PATIENT
  Age: 56 Year
  Sex: Female
  Weight: 50.85 kg

DRUGS (1)
  1. MODAFINIL TABLETS 200MG [Suspect]
     Active Substance: MODAFINIL
     Indication: MULTIPLE SCLEROSIS
     Route: 048
     Dates: start: 2005, end: 201503

REACTIONS (4)
  - Decreased appetite [Recovered/Resolved]
  - Product use issue [Recovered/Resolved]
  - Energy increased [Recovered/Resolved]
  - Drug ineffective for unapproved indication [Recovered/Resolved]

NARRATIVE: CASE EVENT DATE: 2005
